FAERS Safety Report 4369120-4 (Version None)
Quarter: 2004Q2

REPORT INFORMATION
  Report Type: 
  Country: None (occurrence: None)
  Receive Date: 20040527
  Receipt Date: 20040514
  Transmission Date: 20050107
  Serious: Yes (Other)
  Sender: FDA-Public Use
  Company Number: 2004032845

PATIENT
  Age: 28 Year
  Sex: Female
  Weight: 48.5349 kg

DRUGS (2)
  1. NEURONTIN [Suspect]
     Indication: DEPRESSION
     Dates: start: 19991001
  2. ZYRTEC [Suspect]
     Indication: ANGIONEUROTIC OEDEMA
     Dosage: 10 MG (10 MG, DAILY)
     Dates: start: 20010101

REACTIONS (7)
  - CATARACT [None]
  - DIABETES MELLITUS [None]
  - GASTROOESOPHAGEAL REFLUX DISEASE [None]
  - MARKEDLY REDUCED DIETARY INTAKE [None]
  - RETINAL DETACHMENT [None]
  - VOMITING [None]
  - WEIGHT DECREASED [None]
